FAERS Safety Report 4497402-4 (Version None)
Quarter: 2004Q4

REPORT INFORMATION
  Report Type: 
  Country: None (occurrence: None)
  Receive Date: 20041110
  Receipt Date: 20041101
  Transmission Date: 20050328
  Serious: Yes (Hospitalization)
  Sender: FDA-Public Use
  Company Number: 200418454US

PATIENT
  Sex: Male

DRUGS (7)
  1. LANTUS [Suspect]
     Indication: DIABETES MELLITUS NON-INSULIN-DEPENDENT
     Dosage: DOSE UNIT: UNITS
     Route: 058
  2. PREDNISONE [Concomitant]
  3. DOXYCYCLINE [Concomitant]
  4. LEVAQUIN [Concomitant]
  5. ANTIBIOTICS [Concomitant]
     Indication: SKIN ULCER
     Dates: start: 20040601
  6. PHENERGAN [Concomitant]
  7. MIDODRINE HCL [Concomitant]
     Indication: ORTHOSTATIC HYPOTENSION

REACTIONS (4)
  - DIABETES MELLITUS INADEQUATE CONTROL [None]
  - ORTHOSTATIC HYPOTENSION [None]
  - SHOCK HYPOGLYCAEMIC [None]
  - STOMACH DISCOMFORT [None]
